FAERS Safety Report 23988297 (Version 6)
Quarter: 2025Q1

REPORT INFORMATION
  Report Type: Spontaneous
  Country: US (occurrence: US)
  Receive Date: 20240619
  Receipt Date: 20250305
  Transmission Date: 20250409
  Serious: Yes (Hospitalization)
  Sender: ELI LILLY AND COMPANY
  Company Number: US-ELI_LILLY_AND_COMPANY-US202406011544

PATIENT
  Age: 65 Year
  Sex: Female

DRUGS (8)
  1. ADCIRCA [Suspect]
     Active Substance: TADALAFIL
     Indication: Pulmonary arterial hypertension
     Dosage: 40 MG, DAILY
     Route: 048
     Dates: start: 202103
  2. ADCIRCA [Suspect]
     Active Substance: TADALAFIL
     Dosage: 40 MG, DAILY
     Route: 048
     Dates: start: 202104
  3. VELETRI [Suspect]
     Active Substance: EPOPROSTENOL
     Indication: Product used for unknown indication
     Route: 065
  4. VELETRI [Suspect]
     Active Substance: EPOPROSTENOL
     Route: 065
     Dates: start: 20240801
  5. VELETRI [Suspect]
     Active Substance: EPOPROSTENOL
     Route: 065
  6. VELETRI [Suspect]
     Active Substance: EPOPROSTENOL
     Route: 065
  7. VELETRI [Suspect]
     Active Substance: EPOPROSTENOL
     Route: 042
  8. WINREVAIR [Concomitant]
     Active Substance: SOTATERCEPT-CSRK
     Indication: Product used for unknown indication
     Route: 058

REACTIONS (8)
  - Flushing [Recovered/Resolved]
  - Flushing [Recovered/Resolved]
  - Infection [Unknown]
  - Abscess [Unknown]
  - Diarrhoea [Not Recovered/Not Resolved]
  - Headache [Unknown]
  - Flushing [Unknown]
  - Heart rate increased [Unknown]

NARRATIVE: CASE EVENT DATE: 20240612
